FAERS Safety Report 23708174 (Version 1)
Quarter: 2024Q2

REPORT INFORMATION
  Report Type: Spontaneous
  Country: US (occurrence: None)
  Receive Date: 20240404
  Receipt Date: 20240404
  Transmission Date: 20240716
  Serious: Yes (Hospitalization)
  Sender: FDA-Public Use
  Company Number: None

PATIENT
  Age: 64 Year
  Sex: Male

DRUGS (1)
  1. SKYRIZI [Suspect]
     Active Substance: RISANKIZUMAB-RZAA
     Dosage: OTHER FREQUENCY : EVERY 12 WEEKS;?

REACTIONS (5)
  - Musculoskeletal stiffness [None]
  - Sleep apnoea syndrome [None]
  - Bronchitis [None]
  - Oesophagitis [None]
  - Haematemesis [None]
